FAERS Safety Report 9550321 (Version 2)
Quarter: 2014Q2

REPORT INFORMATION
  Report Type: Spontaneous
  Country: US (occurrence: US)
  Receive Date: 20130924
  Receipt Date: 20140625
  Transmission Date: 20141212
  Serious: No
  Sender: FDA-Public Use
  Company Number: US-SANOFI-AVENTIS-2013SA072979

PATIENT
  Age: 31 Year
  Sex: Female

DRUGS (5)
  1. AUBAGIO [Suspect]
     Indication: MULTIPLE SCLEROSIS
     Route: 048
     Dates: start: 20130504, end: 20130815
  2. PRILOSEC [Concomitant]
  3. ZOLOFT [Concomitant]
  4. AMANTADINE [Concomitant]
  5. ABILIFY [Concomitant]

REACTIONS (1)
  - Eye swelling [Recovered/Resolved]
